FAERS Safety Report 12659901 (Version 1)
Quarter: 2016Q3

REPORT INFORMATION
  Report Type: Spontaneous
  Country: US (occurrence: US)
  Receive Date: 20160817
  Receipt Date: 20160817
  Transmission Date: 20161109
  Serious: No
  Sender: FDA-Public Use
  Company Number: US-SHIRE-2016DX000170

PATIENT

DRUGS (1)
  1. KALBITOR [Suspect]
     Active Substance: ECALLANTIDE
     Indication: HEREDITARY ANGIOEDEMA
     Dosage: 30 MG, PRN
     Route: 058

REACTIONS (4)
  - Joint crepitation [Unknown]
  - Weight bearing difficulty [Unknown]
  - Arthralgia [Unknown]
  - Ligament sprain [Unknown]

NARRATIVE: CASE EVENT DATE: 20160505
